FAERS Safety Report 6171843-1 (Version None)
Quarter: 2009Q2

REPORT INFORMATION
  Report Type: 
  Country: None (occurrence: None)
  Receive Date: 20090428
  Receipt Date: 20090428
  Transmission Date: 20091009
  Serious: Yes (Hospitalization)
  Sender: FDA-Public Use
  Company Number: None

PATIENT
  Age: 63 Year
  Sex: Female
  Weight: 66 kg

DRUGS (11)
  1. LENALIDOMIDE [Suspect]
     Indication: HEPATIC NEOPLASM MALIGNANT
     Dosage: 25MG DAILY PO
     Route: 048
     Dates: start: 20090414, end: 20090422
  2. ATENOLOL [Concomitant]
  3. ASPIRIN [Concomitant]
  4. HYDROMORPHONE HCL [Concomitant]
  5. COLACE [Concomitant]
  6. ODANSETRON [Concomitant]
  7. FURESEMIDE [Concomitant]
  8. SENNA [Concomitant]
  9. METOCLOPRAMIDE [Concomitant]
  10. SPIRONOLACTONE [Concomitant]
  11. MIRALAX [Concomitant]

REACTIONS (13)
  - ABDOMINAL DISTENSION [None]
  - ASTERIXIS [None]
  - ATRIAL FIBRILLATION [None]
  - CONSTIPATION [None]
  - DYSPNOEA [None]
  - LETHARGY [None]
  - MENTAL STATUS CHANGES [None]
  - NAUSEA [None]
  - PAIN [None]
  - PERITONITIS BACTERIAL [None]
  - PITTING OEDEMA [None]
  - RENAL FAILURE ACUTE [None]
  - VOMITING [None]
